FAERS Safety Report 11927127 (Version 1)
Quarter: 2016Q1

REPORT INFORMATION
  Report Type: Spontaneous
  Country: US (occurrence: None)
  Receive Date: 20160115
  Receipt Date: 20160115
  Transmission Date: 20160526
  Serious: Yes (Hospitalization)
  Sender: FDA-Public Use
  Company Number: None

PATIENT
  Age: 46 Year
  Sex: Male

DRUGS (7)
  1. ACETELSTEINE [Concomitant]
  2. BETHKIS [Concomitant]
     Active Substance: TOBRAMYCIN
  3. TOBI PODHALER [Concomitant]
     Active Substance: TOBRAMYCIN
  4. PERTZYE [Suspect]
     Active Substance: PANCRELIPASE AMYLASE\PANCRELIPASE LIPASE\PANCRELIPASE PROTEASE
     Indication: CYSTIC FIBROSIS
     Dosage: 16,0000, 7 TIMES DAILY, ORAL
     Route: 048
     Dates: start: 20131007
  5. COLISTIN [Concomitant]
     Active Substance: COLISTIN
  6. ORKAMBI [Suspect]
     Active Substance: IVACAFTOR\LUMACAFTOR
     Indication: CYSTIC FIBROSIS
     Dosage: 200MG/125MG2, BID, ORAL
     Dates: start: 20150729
  7. CAYSTON [Concomitant]
     Active Substance: AZTREONAM

REACTIONS (1)
  - Hospitalisation [None]

NARRATIVE: CASE EVENT DATE: 201601
